FAERS Safety Report 7047039-8 (Version None)
Quarter: 2010Q4

REPORT INFORMATION
  Report Type: 
  Country: None (occurrence: None)
  Receive Date: 20101007
  Receipt Date: 20100924
  Transmission Date: 20110411
  Serious: Yes (Hospitalization, Other)
  Sender: FDA-Public Use
  Company Number: IPC201009-000265

PATIENT
  Sex: Female

DRUGS (3)
  1. ATENOLOL [Suspect]
     Indication: BLOOD PRESSURE
     Dosage: 50 MG, HALF A TABLET, DAILY, ORAL
     Route: 048
  2. LISINOPRIL [Suspect]
     Dosage: 10MG, ONE TABLET DAILY, ORAL
     Route: 048
  3. ZOPICLONE [Suspect]
     Indication: INITIAL INSOMNIA
     Dosage: 7.5MG, HALF A TABLET DAILY AT NIGHT, ORAL
     Route: 048

REACTIONS (4)
  - FOOD ALLERGY [None]
  - LIP SWELLING [None]
  - PRODUCT SUBSTITUTION ISSUE [None]
  - SWOLLEN TONGUE [None]
